FAERS Safety Report 22173076 (Version 2)
Quarter: 2023Q2

REPORT INFORMATION
  Report Type: Report from Study
  Country: US (occurrence: None)
  Receive Date: 20230404
  Receipt Date: 20230421
  Transmission Date: 20230722
  Serious: Yes (Death)
  Sender: FDA-Public Use
  Company Number: US-Merck Healthcare KGaA-9394275

PATIENT
  Sex: Female

DRUGS (1)
  1. TEPMETKO [Suspect]
     Active Substance: TEPOTINIB HYDROCHLORIDE
     Indication: Lung carcinoma cell type unspecified stage IV
     Dates: start: 20220526

REACTIONS (3)
  - Pneumonitis [Fatal]
  - Disease progression [Fatal]
  - Generalised oedema [Unknown]
